FAERS Safety Report 10480549 (Version 2)
Quarter: 2014Q4

REPORT INFORMATION
  Report Type: Spontaneous
  Country: JP (occurrence: None)
  Receive Date: 20140925
  Receipt Date: 20141229
  Transmission Date: 20150528
  Serious: Yes (Hospitalization)
  Sender: FDA-Public Use
  Company Number: 2014MPI00784

PATIENT
  Age: 66 Year
  Sex: Male
  Weight: 69.8 kg

DRUGS (6)
  1. FAMOTIDINE (FAMOTIDINE) [Concomitant]
     Active Substance: FAMOTIDINE
  2. BARACLUDE (ENTECAVIR) [Concomitant]
     Active Substance: ENTECAVIR
  3. ACETAMINOPHEN (ACETAMINOPHEN) [Concomitant]
     Active Substance: ACETAMINOPHEN
  4. LACTULOSE (LACTULOSE) [Concomitant]
     Active Substance: LACTULOSE
  5. ADCETRIS [Suspect]
     Active Substance: BRENTUXIMAB VEDOTIN
     Indication: ANAPLASTIC LARGE-CELL LYMPHOMA
     Dosage: Q28D
     Route: 041
     Dates: start: 20140605, end: 20140605
  6. ANTIHISTAMINES [Concomitant]
     Active Substance: ANTIHISTAMINES NOS

REACTIONS (5)
  - Malaise [None]
  - Sepsis [None]
  - Peripheral sensory neuropathy [None]
  - Rectal polyp [None]
  - Weight decreased [None]

NARRATIVE: CASE EVENT DATE: 20140611
